FAERS Safety Report 8406728 (Version 5)
Quarter: 2015Q1

REPORT INFORMATION
  Report Type: Report from Study
  Country: PL (occurrence: PL)
  Receive Date: 20120215
  Receipt Date: 20150310
  Transmission Date: 20150721
  Serious: Yes (Other)
  Sender: FDA-Public Use
  Company Number: PL-ROCHE-1026007

PATIENT
  Age: 59 Year
  Sex: Female
  Weight: 87.3 kg

DRUGS (5)
  1. KALII CHLORIDI [Concomitant]
     Dosage: REPORTED AS KALII CHLORIDIUM
     Route: 065
     Dates: start: 20111213, end: 20120110
  2. ASPIRIN. [Concomitant]
     Active Substance: ASPIRIN
     Route: 065
     Dates: start: 1995
  3. VEMURAFENIB [Suspect]
     Active Substance: VEMURAFENIB
     Indication: MALIGNANT MELANOMA
     Dosage: LAST DOSE PRIOR TO SAE 13 DEC 2011.
     Route: 048
     Dates: start: 20111018
  4. SIMVASTATIN. [Concomitant]
     Active Substance: SIMVASTATIN
     Dosage: REPORTED AS ^SIMVASTATINUM^
     Route: 065
     Dates: start: 1995
  5. RAMIPRIL. [Concomitant]
     Active Substance: RAMIPRIL
     Route: 065
     Dates: start: 1995

REACTIONS (1)
  - Acanthosis [Recovered/Resolved]

NARRATIVE: CASE EVENT DATE: 20111213
